FAERS Safety Report 16628475 (Version 10)
Quarter: 2022Q2

REPORT INFORMATION
  Report Type: Spontaneous
  Country: CA (occurrence: CA)
  Receive Date: 20190725
  Receipt Date: 20220510
  Transmission Date: 20220721
  Serious: Yes (Hospitalization, Other)
  Sender: FDA-Public Use
  Company Number: CA-CELLTRION INC.-2017CA017702

PATIENT

DRUGS (47)
  1. INFLECTRA [Suspect]
     Active Substance: INFLIXIMAB-DYYB
     Indication: Rheumatoid arthritis
     Dosage: 300 MG, 0, 2, 6 WEEKS, THEN EVERY 8 WEEKS
     Route: 042
     Dates: start: 20171128, end: 20180323
  2. INFLECTRA [Suspect]
     Active Substance: INFLIXIMAB-DYYB
     Dosage: 300 MG, 0, 2, 6 WEEKS, THEN EVERY 8 WEEKS
     Route: 042
     Dates: start: 20171212
  3. INFLECTRA [Suspect]
     Active Substance: INFLIXIMAB-DYYB
     Dosage: 300 MG, 0, 2, 6 WEEKS, THEN EVERY 8 WEEKS
     Route: 042
     Dates: start: 20180123, end: 20180323
  4. INFLECTRA [Suspect]
     Active Substance: INFLIXIMAB-DYYB
     Dosage: 400 MG, EVERY 7 WEEKS FOR 12 MONTHS
     Route: 042
  5. INFLECTRA [Suspect]
     Active Substance: INFLIXIMAB-DYYB
     Dosage: 400 MG, EVERY 7 WEEKS
     Route: 042
     Dates: start: 20180511, end: 20190111
  6. INFLECTRA [Suspect]
     Active Substance: INFLIXIMAB-DYYB
     Dosage: 400 MG, EVERY 7 WEEKS
     Route: 042
     Dates: start: 20180817
  7. INFLECTRA [Suspect]
     Active Substance: INFLIXIMAB-DYYB
     Dosage: 400 MG, EVERY 7 WEEKS
     Route: 042
     Dates: start: 20190111
  8. INFLECTRA [Suspect]
     Active Substance: INFLIXIMAB-DYYB
     Dosage: 300 MG, EVERY 8 WEEKS
     Route: 042
     Dates: start: 20190322, end: 20191004
  9. INFLECTRA [Suspect]
     Active Substance: INFLIXIMAB-DYYB
     Dosage: 300 MG, EVERY 8 WEEKS
     Route: 042
     Dates: start: 20190510
  10. INFLECTRA [Suspect]
     Active Substance: INFLIXIMAB-DYYB
     Dosage: 300 MG, EVERY 8 WEEKS
     Route: 042
     Dates: start: 20190522, end: 20191004
  11. INFLECTRA [Suspect]
     Active Substance: INFLIXIMAB-DYYB
     Dosage: 300 MG, EVERY 8 WEEKS
     Route: 042
     Dates: start: 20190628
  12. INFLECTRA [Suspect]
     Active Substance: INFLIXIMAB-DYYB
     Dosage: 300 MG, EVERY 8 WEEKS
     Route: 042
     Dates: start: 20191004
  13. INFLECTRA [Suspect]
     Active Substance: INFLIXIMAB-DYYB
     Dosage: 800 MG, EVERY 7 WEEKS
     Route: 042
     Dates: start: 20191127
  14. INFLECTRA [Suspect]
     Active Substance: INFLIXIMAB-DYYB
     Dosage: 800 MG, EVERY 7 WEEKS
     Route: 042
     Dates: start: 20191127
  15. INFLECTRA [Suspect]
     Active Substance: INFLIXIMAB-DYYB
     Dosage: 800 MG, EVERY 7 WEEKS
     Route: 042
     Dates: start: 20200130
  16. INFLECTRA [Suspect]
     Active Substance: INFLIXIMAB-DYYB
     Dosage: 800 MG, EVERY 7 WEEKS
     Route: 042
     Dates: start: 20200130
  17. INFLECTRA [Suspect]
     Active Substance: INFLIXIMAB-DYYB
     Dosage: 800 MG, EVERY 7 WEEKS
     Route: 042
     Dates: start: 20200130
  18. INFLECTRA [Suspect]
     Active Substance: INFLIXIMAB-DYYB
     Dosage: 800 MG, EVERY 7 WEEKS
     Route: 042
     Dates: start: 20200130
  19. INFLECTRA [Suspect]
     Active Substance: INFLIXIMAB-DYYB
     Dosage: 800 MG, EVERY 7 WEEKS
     Route: 042
     Dates: start: 20200708
  20. INFLECTRA [Suspect]
     Active Substance: INFLIXIMAB-DYYB
     Dosage: 800 MG, EVERY 7 WEEKS
     Route: 042
     Dates: start: 20201216
  21. INFLECTRA [Suspect]
     Active Substance: INFLIXIMAB-DYYB
     Dosage: 800 MG, EVERY 7 WEEKS
     Route: 042
     Dates: start: 20210203
  22. INFLECTRA [Suspect]
     Active Substance: INFLIXIMAB-DYYB
     Dosage: 800 MG, EVERY 7 WEEKS
     Route: 042
     Dates: start: 20210521
  23. INFLECTRA [Suspect]
     Active Substance: INFLIXIMAB-DYYB
     Dosage: 800 MG, EVERY 7 WEEKS
     Route: 042
     Dates: start: 20210521
  24. INFLECTRA [Suspect]
     Active Substance: INFLIXIMAB-DYYB
     Dosage: 800 MG, EVERY 7 WEEKS
     Route: 042
     Dates: start: 20210707
  25. INFLECTRA [Suspect]
     Active Substance: INFLIXIMAB-DYYB
     Dosage: 800 MG, EVERY 7 WEEKS
     Route: 042
     Dates: start: 20210924
  26. INFLECTRA [Suspect]
     Active Substance: INFLIXIMAB-DYYB
     Dosage: 800 MG, EVERY 7 WEEKS
     Route: 042
     Dates: start: 20211126
  27. INFLECTRA [Suspect]
     Active Substance: INFLIXIMAB-DYYB
     Dosage: 800 MG, EVERY 7 WEEKS
     Route: 042
     Dates: start: 20220304
  28. INFLECTRA [Suspect]
     Active Substance: INFLIXIMAB-DYYB
     Dosage: 800 MG, EVERY 7 WEEKS
     Route: 042
     Dates: start: 20220304
  29. INFLECTRA [Suspect]
     Active Substance: INFLIXIMAB-DYYB
     Dosage: 800 MG, EVERY 7 WEEKS
     Route: 042
     Dates: start: 20220422
  30. ACETAMINOPHEN [Concomitant]
     Active Substance: ACETAMINOPHEN
     Indication: Premedication
     Dosage: 650 MG
     Dates: start: 20200708
  31. ACETAMINOPHEN [Concomitant]
     Active Substance: ACETAMINOPHEN
     Dosage: 650 MG
     Dates: start: 20210203, end: 20210203
  32. ACETAMINOPHEN [Concomitant]
     Active Substance: ACETAMINOPHEN
     Dosage: 650 MG
     Route: 048
     Dates: start: 20210707, end: 20210707
  33. DIMENHYDRINATE [Concomitant]
     Active Substance: DIMENHYDRINATE
     Indication: Premedication
     Dosage: 50 MG
     Dates: start: 20200708
  34. DIMENHYDRINATE [Concomitant]
     Active Substance: DIMENHYDRINATE
     Dosage: 50 MG
     Dates: start: 20210203, end: 20210203
  35. DIMENHYDRINATE [Concomitant]
     Active Substance: DIMENHYDRINATE
     Dosage: 50 MG
     Route: 048
     Dates: start: 20210707, end: 20210707
  36. DIPHENHYDRAMINE [Concomitant]
     Active Substance: DIPHENHYDRAMINE
     Indication: Premedication
     Dosage: 50 MG
     Dates: start: 20200708
  37. DIPHENHYDRAMINE [Concomitant]
     Active Substance: DIPHENHYDRAMINE
     Dosage: 50 MG
     Dates: start: 20210203, end: 20210203
  38. DIPHENHYDRAMINE [Concomitant]
     Active Substance: DIPHENHYDRAMINE
     Dosage: 50 MG
     Route: 048
     Dates: start: 20210707, end: 20210707
  39. DICLOFENAC [Concomitant]
     Active Substance: DICLOFENAC
     Dosage: 2.5 MG, 1X/DAY
     Route: 065
     Dates: start: 2015
  40. FOLIC ACID [Concomitant]
     Active Substance: FOLIC ACID
     Dosage: 5 MG, 1X/DAY
  41. HYDROCORTISONE [Concomitant]
     Active Substance: HYDROCORTISONE
     Indication: Premedication
     Dosage: 100 MG
     Dates: start: 20200708
  42. HYDROCORTISONE [Concomitant]
     Active Substance: HYDROCORTISONE
     Dosage: 100 MG
     Dates: start: 20210203, end: 20210203
  43. IRON [Concomitant]
     Active Substance: IRON
     Dosage: UNK
     Route: 065
  44. METHOTREXATE [Concomitant]
     Active Substance: METHOTREXATE
     Dosage: 11 TABLETS, EVERY WEEK
     Route: 065
     Dates: start: 2015
  45. METHOTREXATE [Concomitant]
     Active Substance: METHOTREXATE
     Dosage: 1 DF, WEEKLY
     Route: 065
     Dates: start: 2015
  46. METHYLPREDNISOLONE [Concomitant]
     Active Substance: METHYLPREDNISOLONE
     Indication: Premedication
     Dosage: 100 MG
     Route: 042
     Dates: start: 20210707, end: 20210707
  47. OMEPRAZOLE [Concomitant]
     Active Substance: OMEPRAZOLE
     Dosage: UNK, 1X/DAY
     Route: 065

REACTIONS (19)
  - Haemoglobin decreased [Unknown]
  - Urticaria [Unknown]
  - Tooth infection [Unknown]
  - Tooth abscess [Recovered/Resolved]
  - Expired product administered [Unknown]
  - Product dose omission issue [Unknown]
  - Inappropriate schedule of product administration [Unknown]
  - Off label use [Unknown]
  - Poor venous access [Unknown]
  - Blood iron decreased [Unknown]
  - Oropharyngeal pain [Unknown]
  - Dysphonia [Unknown]
  - Feeling of body temperature change [Unknown]
  - Pallor [Unknown]
  - Hypersensitivity [Unknown]
  - Pyrexia [Unknown]
  - Injection site extravasation [Unknown]
  - Body temperature decreased [Unknown]
  - Body temperature increased [Not Recovered/Not Resolved]

NARRATIVE: CASE EVENT DATE: 20171128
